FAERS Safety Report 12077068 (Version 2)
Quarter: 2016Q1

REPORT INFORMATION
  Report Type: Report from Study
  Country: JP (occurrence: JP)
  Receive Date: 20160215
  Receipt Date: 20160330
  Transmission Date: 20160526
  Serious: Yes (Death, Other)
  Sender: FDA-Public Use
  Company Number: JP-UCBSA-2016005468

PATIENT
  Age: 83 Year
  Sex: Male

DRUGS (7)
  1. TEGRETOL [Concomitant]
     Active Substance: CARBAMAZEPINE
     Indication: PARTIAL SEIZURES WITH SECONDARY GENERALISATION
     Dosage: 1000 MG
     Route: 048
     Dates: end: 20160126
  2. LEVETIRACETAM. [Suspect]
     Active Substance: LEVETIRACETAM
     Indication: PARTIAL SEIZURES WITH SECONDARY GENERALISATION
     Dosage: 1000 MG, 2X/DAY (BID)
     Route: 048
     Dates: start: 20160127, end: 20160203
  3. VERAPAMIL HYDROCHLORIDE. [Concomitant]
     Active Substance: VERAPAMIL HYDROCHLORIDE
     Indication: TACHYCARDIA
  4. MEMARY [Concomitant]
     Active Substance: MEMANTINE HYDROCHLORIDE
     Indication: PRODUCT USED FOR UNKNOWN INDICATION
     Dosage: 10 MG
     Route: 048
     Dates: end: 20160202
  5. VERAPAMIL HYDROCHLORIDE. [Concomitant]
     Active Substance: VERAPAMIL HYDROCHLORIDE
     Indication: ATRIAL FIBRILLATION
     Dosage: UNK
     Dates: start: 20160128
  6. ARICEPT [Concomitant]
     Active Substance: DONEPEZIL HYDROCHLORIDE
     Indication: PRODUCT USED FOR UNKNOWN INDICATION
     Dosage: 10 MG
     Route: 048
     Dates: end: 20160202
  7. CEFOTIAM HEXETIL HYDROCHLORIDE [Concomitant]
     Indication: PNEUMONIA
     Dosage: 2 G/DAY
     Route: 042
     Dates: start: 20160125, end: 20160129

REACTIONS (7)
  - Tachycardia [Fatal]
  - Hypoalbuminaemia [Fatal]
  - Blood lactate dehydrogenase increased [Fatal]
  - Pneumonia [Fatal]
  - Atrial fibrillation [Fatal]
  - Hypoproteinaemia [Fatal]
  - Hypokalaemia [Fatal]

NARRATIVE: CASE EVENT DATE: 201601
